FAERS Safety Report 12265824 (Version 4)
Quarter: 2016Q4

REPORT INFORMATION
  Report Type: Report from Study
  Country: US (occurrence: US)
  Receive Date: 20160413
  Receipt Date: 20161115
  Transmission Date: 20170207
  Serious: Yes (Hospitalization, Other)
  Sender: FDA-Public Use
  Company Number: PHEH2016US008303

PATIENT
  Age: 57 Year
  Sex: Male
  Weight: 158 kg

DRUGS (1)
  1. ENTRESTO [Suspect]
     Active Substance: SACUBITRIL\VALSARTAN
     Indication: LEFT VENTRICULAR FAILURE
     Dosage: 50 MG, QD
     Route: 048
     Dates: start: 201511

REACTIONS (7)
  - Bursitis infective [Unknown]
  - Underdose [Unknown]
  - Back pain [Unknown]
  - Fall [Unknown]
  - Myocardial infarction [Unknown]
  - Lumbar vertebral fracture [Unknown]
  - Back injury [Recovering/Resolving]

NARRATIVE: CASE EVENT DATE: 201601
